FAERS Safety Report 4502247-2 (Version None)
Quarter: 2004Q4

REPORT INFORMATION
  Report Type: 
  Country: None (occurrence: None)
  Receive Date: 20041109
  Receipt Date: 20041022
  Transmission Date: 20050328
  Serious: No
  Sender: FDA-Public Use
  Company Number: JP_041105005

PATIENT
  Sex: Female

DRUGS (1)
  1. EVISTA [Suspect]
     Indication: OSTEOPOROSIS
     Dosage: 60 MG/1 DAY
     Dates: start: 20040813, end: 20040918

REACTIONS (4)
  - CATARACT [None]
  - CONSTIPATION [None]
  - GLAUCOMA [None]
  - VISUAL ACUITY REDUCED [None]
